FAERS Safety Report 7992953-X (Version None)
Quarter: 2011Q4

REPORT INFORMATION
  Report Type: 
  Country: None (occurrence: None)
  Receive Date: 20111219
  Receipt Date: 20101223
  Transmission Date: 20120403
  Serious: No
  Sender: FDA-Public Use
  Company Number: US-ASTRAZENECA-2010SE39293

PATIENT
  Age: 69 Year
  Sex: Female
  Weight: 68 kg

DRUGS (9)
  1. CRESTOR [Suspect]
     Indication: HYPERCHOLESTEROLAEMIA
     Route: 048
     Dates: start: 20100701
  2. COZAAR [Concomitant]
  3. COREG [Concomitant]
  4. ASPIRIN [Concomitant]
  5. ATIVAN [Concomitant]
  6. DILTIAZEM HCL [Concomitant]
  7. LEVOTHYROXINE SODIUM [Concomitant]
  8. CRESTOR [Suspect]
     Indication: ATHEROSCLEROSIS PROPHYLAXIS
     Route: 048
     Dates: start: 20100701
  9. PLAVIX [Concomitant]

REACTIONS (2)
  - PARAESTHESIA [None]
  - VIBRATORY SENSE INCREASED [None]
